FAERS Safety Report 16035550 (Version 2)
Quarter: 2019Q1

REPORT INFORMATION
  Report Type: Report from Study
  Country: AR (occurrence: AR)
  Receive Date: 20190305
  Receipt Date: 20190314
  Transmission Date: 20190418
  Serious: Yes (Other)
  Sender: FDA-Public Use
  Company Number: AR-BAYER-2019-042774

PATIENT
  Age: 83 Year
  Sex: Male

DRUGS (6)
  1. NEXAVAR [Suspect]
     Active Substance: SORAFENIB
     Indication: HEPATIC CANCER
     Dosage: 200 MG, QD FOR (10 DAYS, REST FOR 7 DAYS)
     Dates: start: 201506, end: 201901
  2. LOTRIAL [ENALAPRILAT] [Concomitant]
  3. ENSURE [NUTRIENTS NOS] [Concomitant]
  4. ATENOLOL. [Concomitant]
     Active Substance: ATENOLOL
  5. PLANTABEN [PLANTAGO OVATA] [Concomitant]
  6. NEXAVAR [Suspect]
     Active Substance: SORAFENIB
     Indication: HEPATIC CANCER
     Dosage: 800 MG QD

REACTIONS (7)
  - Off label use [None]
  - Pain [Unknown]
  - Adverse drug reaction [None]
  - Alpha 1 foetoprotein increased [Unknown]
  - Hepatocellular carcinoma [Not Recovered/Not Resolved]
  - Nodule [Unknown]
  - Diarrhoea [Not Recovered/Not Resolved]

NARRATIVE: CASE EVENT DATE: 201901
